FAERS Safety Report 5489296-5 (Version None)
Quarter: 2007Q4

REPORT INFORMATION
  Report Type: 
  Country: None (occurrence: None)
  Receive Date: 20071018
  Receipt Date: 20071010
  Transmission Date: 20080405
  Serious: Yes (Hospitalization)
  Sender: FDA-Public Use
  Company Number: FR-BRISTOL-MYERS SQUIBB COMPANY-13937966

PATIENT
  Age: 91 Year
  Sex: Female

DRUGS (8)
  1. LOPRIL TABS [Suspect]
     Indication: HYPERTENSION
     Dates: start: 20070530, end: 20070718
  2. LASIX [Suspect]
     Indication: HYPERTENSION
     Dates: start: 20070530, end: 20070718
  3. REMINYL [Concomitant]
     Dates: start: 20070530
  4. CARDENSIEL [Concomitant]
     Dates: start: 20070530
  5. CORDARONE [Concomitant]
     Dates: start: 20070530
  6. KARDEGIC [Concomitant]
  7. SEROPRAM [Concomitant]
  8. LEVOTHYROX [Concomitant]
     Indication: HYPOTHYROIDISM

REACTIONS (2)
  - DEHYDRATION [None]
  - RENAL FAILURE [None]
